FAERS Safety Report 5353559-4 (Version None)
Quarter: 2007Q2

REPORT INFORMATION
  Report Type: 
  Country: None (occurrence: None)
  Receive Date: 20070608
  Receipt Date: 20070608
  Transmission Date: 20071010
  Serious: Yes (Hospitalization)
  Sender: FDA-Public Use
  Company Number: None

PATIENT
  Sex: Male
  Weight: 96.7 kg

DRUGS (3)
  1. CYCLOSPORINE [Suspect]
     Dosage: 14370 MG
  2. METHOTREXATE [Suspect]
     Dosage: 50 MG
  3. PENTOSTATIN [Suspect]
     Dosage: 16 MG

REACTIONS (8)
  - AGITATION [None]
  - BLINDNESS [None]
  - BLOOD PRESSURE ABNORMAL [None]
  - CONFUSIONAL STATE [None]
  - HYPERTENSION [None]
  - MENTAL STATUS CHANGES [None]
  - REVERSIBLE POSTERIOR LEUKOENCEPHALOPATHY SYNDROME [None]
  - VISION BLURRED [None]
